FAERS Safety Report 12290942 (Version 3)
Quarter: 2016Q2

REPORT INFORMATION
  Report Type: Report from Study
  Country: US (occurrence: US)
  Receive Date: 20160421
  Receipt Date: 20160527
  Transmission Date: 20160815
  Serious: Yes (Other)
  Sender: FDA-Public Use
  Company Number: US-GILEAD-2016-0208844

PATIENT
  Age: 47 Year
  Sex: Female
  Weight: 71.66 kg

DRUGS (25)
  1. DIGOXIN. [Concomitant]
     Active Substance: DIGOXIN
  2. SIMVASTATIN. [Concomitant]
     Active Substance: SIMVASTATIN
  3. TORSEMIDE. [Concomitant]
     Active Substance: TORSEMIDE
  4. BIOTIN [Concomitant]
     Active Substance: BIOTIN
  5. CELEBREX [Concomitant]
     Active Substance: CELECOXIB
  6. KLOR-CON [Concomitant]
     Active Substance: POTASSIUM CHLORIDE
  7. REQUIP [Concomitant]
     Active Substance: ROPINIROLE HYDROCHLORIDE
  8. SPIRONOLACTONE. [Concomitant]
     Active Substance: SPIRONOLACTONE
  9. REVATIO [Concomitant]
     Active Substance: SILDENAFIL CITRATE
  10. STOOL SOFTENER [Concomitant]
     Active Substance: DOCUSATE CALCIUM
  11. ASCORBIC ACID. [Concomitant]
     Active Substance: ASCORBIC ACID
  12. FLUTICASONE [Concomitant]
     Active Substance: FLUTICASONE\FLUTICASONE PROPIONATE
  13. LEVOTHYROXINE. [Concomitant]
     Active Substance: LEVOTHYROXINE
  14. OMEPRAZOLE. [Concomitant]
     Active Substance: OMEPRAZOLE
  15. ONDANSETRON [Concomitant]
     Active Substance: ONDANSETRON
  16. AMITRIPTYLINE [Concomitant]
     Active Substance: AMITRIPTYLINE
  17. MELOXICAM. [Concomitant]
     Active Substance: MELOXICAM
  18. AMBRISENTAN [Suspect]
     Active Substance: AMBRISENTAN
     Indication: PRODUCT USED FOR UNKNOWN INDICATION
     Dosage: 10 MG, QD
     Route: 065
     Dates: start: 20130404
  19. DIPHENHYDRAMINE. [Concomitant]
     Active Substance: DIPHENHYDRAMINE
  20. FERROUS GLUCONATE [Concomitant]
     Active Substance: FERROUS GLUCONATE
  21. ZOCOR [Concomitant]
     Active Substance: SIMVASTATIN
  22. METOLAZONE. [Concomitant]
     Active Substance: METOLAZONE
  23. OXYGEN. [Concomitant]
     Active Substance: OXYGEN
  24. XARELTO [Concomitant]
     Active Substance: RIVAROXABAN
  25. UPTRAVI [Concomitant]
     Active Substance: SELEXIPAG

REACTIONS (8)
  - Drug dose omission [Recovered/Resolved]
  - Flushing [Unknown]
  - Tremor [Recovered/Resolved]
  - Syncope [Recovered/Resolved]
  - Dizziness [Recovered/Resolved]
  - Chest discomfort [Unknown]
  - Headache [Recovered/Resolved]
  - Hypotension [Unknown]

NARRATIVE: CASE EVENT DATE: 20160416
